FAERS Safety Report 15615260 (Version 2)
Quarter: 2019Q2

REPORT INFORMATION
  Report Type: Spontaneous
  Country: SE (occurrence: SE)
  Receive Date: 20181114
  Receipt Date: 20190403
  Transmission Date: 20190711
  Serious: Yes (Other)
  Sender: FDA-Public Use
  Company Number: SE-ACCORD-091746

PATIENT
  Age: 65 Year
  Sex: Male

DRUGS (1)
  1. METHOTREXATE. [Suspect]
     Active Substance: METHOTREXATE
     Indication: ECZEMA
     Dosage: 4 TABLETS ONCE / W
     Route: 048
     Dates: start: 20180612, end: 20181003

REACTIONS (3)
  - Cardiac failure [Recovered/Resolved]
  - Off label use [Unknown]
  - Cardiomegaly [Recovered/Resolved]

NARRATIVE: CASE EVENT DATE: 201809
